FAERS Safety Report 5802528-6 (Version None)
Quarter: 2008Q2

REPORT INFORMATION
  Report Type: 
  Country: None (occurrence: None)
  Receive Date: 20080627
  Receipt Date: 20080520
  Transmission Date: 20081010
  Serious: Yes (Other)
  Sender: FDA-Public Use
  Company Number: TPA2008A00738

PATIENT
  Age: 68 Year
  Sex: Female
  Weight: 63.5036 kg

DRUGS (7)
  1. ACTOPLUS MET [Suspect]
     Indication: TYPE 2 DIABETES MELLITUS
     Dosage: 15 MG/500 MG, 2 IN 1 D WITH MEALS, PER ORAL
     Route: 048
     Dates: start: 20070101
  2. BENICAR [Concomitant]
  3. ATENOLOL [Concomitant]
  4. LOZOL [Concomitant]
  5. LOTREL [Concomitant]
  6. CRESTOR [Concomitant]
  7. TRICOR [Concomitant]

REACTIONS (5)
  - BLOOD GLUCOSE DECREASED [None]
  - DIZZINESS [None]
  - NAUSEA [None]
  - RASH PRURITIC [None]
  - URTICARIA [None]
